FAERS Safety Report 6037102-2 (Version None)
Quarter: 2009Q1

REPORT INFORMATION
  Report Type: 
  Country: None (occurrence: None)
  Receive Date: 20090114
  Receipt Date: 20090106
  Transmission Date: 20090719
  Serious: Yes (Life-Threatening)
  Sender: FDA-Public Use
  Company Number: US-JNJFOC-20090101269

PATIENT
  Sex: Male
  Weight: 111.59 kg

DRUGS (12)
  1. REMICADE [Suspect]
     Dosage: 9 INFUSIONS ADMINISTERED SINCE BASELINE
     Route: 042
  2. REMICADE [Suspect]
     Route: 042
  3. REMICADE [Suspect]
     Route: 042
  4. REMICADE [Suspect]
     Route: 042
  5. REMICADE [Suspect]
     Route: 042
  6. REMICADE [Suspect]
     Route: 042
  7. REMICADE [Suspect]
     Route: 042
  8. REMICADE [Suspect]
     Route: 042
  9. REMICADE [Suspect]
     Indication: CROHN'S DISEASE
     Route: 042
  10. MERCAPTOPURINE [Suspect]
     Indication: CROHN'S DISEASE
  11. PENTASA [Concomitant]
     Indication: CROHN'S DISEASE
  12. BUDESONIDE [Concomitant]
     Indication: CROHN'S DISEASE

REACTIONS (1)
  - TONGUE NEOPLASM MALIGNANT STAGE UNSPECIFIED [None]
